FAERS Safety Report 17212458 (Version 27)
Quarter: 2025Q1

REPORT INFORMATION
  Report Type: Report from Study
  Country: US (occurrence: US)
  Receive Date: 20191230
  Receipt Date: 20250324
  Transmission Date: 20250408
  Serious: Yes (Hospitalization, Other)
  Sender: TAKEDA
  Company Number: US-SHIRE-US201945053

PATIENT
  Age: 64 Year
  Sex: Male
  Weight: 130 kg

DRUGS (27)
  1. HUMAN IMMUNOGLOBULIN G [Suspect]
     Active Substance: HUMAN IMMUNOGLOBULIN G
     Indication: Primary immunodeficiency syndrome
     Dosage: 30 GRAM, Q2WEEKS
     Dates: start: 20170527
  2. HUMAN IMMUNOGLOBULIN G [Suspect]
     Active Substance: HUMAN IMMUNOGLOBULIN G
     Indication: Immunodeficiency common variable
     Dosage: 30 GRAM, Q2WEEKS
     Dates: start: 20170531
  3. HUMAN IMMUNOGLOBULIN G [Suspect]
     Active Substance: HUMAN IMMUNOGLOBULIN G
  4. HUMAN IMMUNOGLOBULIN G [Suspect]
     Active Substance: HUMAN IMMUNOGLOBULIN G
     Dosage: 30 GRAM, Q2WEEKS
  5. HUMAN IMMUNOGLOBULIN G [Suspect]
     Active Substance: HUMAN IMMUNOGLOBULIN G
  6. HUMAN IMMUNOGLOBULIN G [Suspect]
     Active Substance: HUMAN IMMUNOGLOBULIN G
  7. HUMAN IMMUNOGLOBULIN G [Suspect]
     Active Substance: HUMAN IMMUNOGLOBULIN G
     Dosage: 20 GRAM, Q2WEEKS
  8. HUMAN IMMUNOGLOBULIN G [Suspect]
     Active Substance: HUMAN IMMUNOGLOBULIN G
  9. ALLEGRA [Concomitant]
     Active Substance: FEXOFENADINE HYDROCHLORIDE
  10. QVAR [Concomitant]
     Active Substance: BECLOMETHASONE DIPROPIONATE
  11. NIFEDIPINE [Concomitant]
     Active Substance: NIFEDIPINE
  12. Maca [Concomitant]
  13. MONTELUKAST SODIUM [Concomitant]
     Active Substance: MONTELUKAST SODIUM
  14. LOSARTAN POTASSIUM [Concomitant]
     Active Substance: LOSARTAN POTASSIUM
  15. COENZYME Q10 [Concomitant]
     Active Substance: DIETARY SUPPLEMENT\UBIDECARENONE
  16. ACETAMINOPHEN [Concomitant]
     Active Substance: ACETAMINOPHEN
  17. DIPHENHYDRAMINE [Concomitant]
     Active Substance: DIPHENHYDRAMINE
  18. EPINEPHRINE [Concomitant]
     Active Substance: EPINEPHRINE
  19. Lmx [Concomitant]
  20. AUGMENTIN [Concomitant]
     Active Substance: AMOXICILLIN\CLAVULANATE POTASSIUM
  21. ZANTAC [Concomitant]
     Active Substance: RANITIDINE HYDROCHLORIDE
  22. LOSARTAN [Concomitant]
     Active Substance: LOSARTAN
  23. DIPHENHYDRAMINE HYDROCHLORIDE [Concomitant]
     Active Substance: DIPHENHYDRAMINE HYDROCHLORIDE
  24. ALLEGRA ALLERGY [Concomitant]
     Active Substance: FEXOFENADINE HYDROCHLORIDE
  25. LIDOCAINE [Concomitant]
     Active Substance: LIDOCAINE
  26. TESTOSTERONE [Concomitant]
     Active Substance: TESTOSTERONE
  27. OXALIPLATIN [Concomitant]
     Active Substance: OXALIPLATIN

REACTIONS (18)
  - Colon cancer [Unknown]
  - Prostate cancer [Unknown]
  - Lower respiratory tract infection [Unknown]
  - Peripheral coldness [Unknown]
  - Intervertebral disc protrusion [Unknown]
  - Wrist fracture [Unknown]
  - COVID-19 [Unknown]
  - Seasonal allergy [Not Recovered/Not Resolved]
  - Back injury [Unknown]
  - Procedural pain [Unknown]
  - Coagulation factor increased [Unknown]
  - Cystitis [Unknown]
  - Upper respiratory tract infection [Recovered/Resolved]
  - Infusion site discomfort [Unknown]
  - Cough [Unknown]
  - Infusion site pain [Unknown]
  - Muscle spasms [Unknown]
  - Fatigue [Unknown]

NARRATIVE: CASE EVENT DATE: 20191128
